FAERS Safety Report 6065721-6 (Version None)
Quarter: 2009Q1

REPORT INFORMATION
  Report Type: 
  Country: None (occurrence: None)
  Receive Date: 20090202
  Receipt Date: 20090121
  Transmission Date: 20090719
  Serious: Yes (Other)
  Sender: FDA-Public Use
  Company Number: CHPA2009US00869

PATIENT
  Sex: Male

DRUGS (1)
  1. TRIAMINIC COLD AND ALLERGY (NCH) (CHLORPHENAMINE MALEATE, PHENYLEPHRIN [Suspect]
     Dosage: ORAL

REACTIONS (3)
  - CONVULSION [None]
  - OVERDOSE [None]
  - PYREXIA [None]
